FAERS Safety Report 9275501 (Version 1)
Quarter: 2013Q1

REPORT INFORMATION
  Report Type: Spontaneous
  Country: US (occurrence: None)
  Receive Date: 20130327
  Receipt Date: 20130327
  Transmission Date: 20140127
  Serious: Yes (Hospitalization)
  Sender: FDA-Public Use
  Company Number: 54973 AE # 1296

PATIENT
  Age: 85 Year
  Sex: Female

DRUGS (2)
  1. HYLAND^S LEG CRAMPS CAPLETS [Suspect]
     Dosage: AS NEEDED X 1 WEEK
  2. HYLAND^S LEG CRAMPS PM TABLETS [Suspect]
     Dosage: AS NEEDED X 1 WEEK

REACTIONS (4)
  - Urinary tract infection [None]
  - Anaemia [None]
  - Blood potassium increased [None]
  - Blood creatinine increased [None]
